FAERS Safety Report 23094538 (Version 2)
Quarter: 2023Q4

REPORT INFORMATION
  Report Type: Spontaneous
  Country: US (occurrence: US)
  Receive Date: 20231023
  Receipt Date: 20231111
  Transmission Date: 20240110
  Serious: Yes (Hospitalization, Other)
  Sender: FDA-Public Use
  Company Number: US-AMGEN-USASP2023186235

PATIENT
  Age: 19 Year
  Sex: Male

DRUGS (1)
  1. TAVNEOS [Suspect]
     Active Substance: AVACOPAN
     Indication: Granulomatosis with polyangiitis
     Dosage: 30 MILLIGRAM, BID (TAKE 3 CAPSULES (30 MG) BY MOUTH TWICE DAILY WITH FOOD)
     Route: 048
     Dates: start: 20230913

REACTIONS (7)
  - Hospitalisation [Unknown]
  - Haemoptysis [Unknown]
  - Deafness [Recovered/Resolved]
  - Dyspnoea [Unknown]
  - Fall [Unknown]
  - Hypoaesthesia [Unknown]
  - Product use issue [Unknown]

NARRATIVE: CASE EVENT DATE: 20230101
